FAERS Safety Report 9697934 (Version 1)
Quarter: 2013Q4

REPORT INFORMATION
  Report Type: Report from Study
  Country: US (occurrence: US)
  Receive Date: 20131120
  Receipt Date: 20131120
  Transmission Date: 20140711
  Serious: No
  Sender: FDA-Public Use
  Company Number: US-ALEXION-A201302931

PATIENT
  Sex: Female

DRUGS (1)
  1. SOLIRIS [Suspect]
     Dosage: NOT SPECIFIED
     Route: 042

REACTIONS (2)
  - Cat scratch disease [Recovered/Resolved]
  - Disease progression [Unknown]
